FAERS Safety Report 9146027 (Version 3)
Quarter: 2013Q1

REPORT INFORMATION
  Report Type: Spontaneous
  Country: US (occurrence: None)
  Receive Date: 20130131
  Receipt Date: 20130326
  Transmission Date: 20140127
  Serious: Yes (Death)
  Sender: FDA-Public Use
  Company Number: AUR-APL-2013-01086

PATIENT
  Age: 57 Year
  Sex: Male
  Weight: 105.3 kg

DRUGS (7)
  1. METFORMIN (METFORMIN) [Suspect]
     Indication: TYPE 2 DIABETES MELLITUS
     Dosage: (500  MG, 2 IN 1 D)
     Route: 048
     Dates: start: 20120319
  2. PLACEBO [Suspect]
     Indication: TYPE 2 DIABETES MELLITUS
     Route: 048
     Dates: start: 20120430
  3. METFORMIN (METFORMIN) [Concomitant]
  4. GLIPIZIDE (GLIPIZIDE) [Concomitant]
  5. CHLORTHALIDONE (CHLORTALIDONE) [Concomitant]
  6. MACA [Concomitant]
  7. MULTIVITAMIN (VIGRAN) [Concomitant]

REACTIONS (1)
  - Death [None]
